FAERS Safety Report 22281567 (Version 2)
Quarter: 2025Q1

REPORT INFORMATION
  Report Type: Spontaneous
  Country: US (occurrence: US)
  Receive Date: 20230504
  Receipt Date: 20250108
  Transmission Date: 20250409
  Serious: No
  Sender: SANOFI AVENTIS
  Company Number: US-SA-SAC20230501000754

PATIENT
  Age: 87 Year
  Sex: Male
  Weight: 79.3 kg

DRUGS (3)
  1. DUPIXENT [Suspect]
     Active Substance: DUPILUMAB
     Indication: Dermatitis atopic
     Dosage: 300 MG, QOW
     Route: 058
     Dates: start: 202101
  2. DALFAMPRIDINE [Suspect]
     Active Substance: DALFAMPRIDINE
  3. AMPYRA [Concomitant]
     Active Substance: DALFAMPRIDINE

REACTIONS (3)
  - Skin disorder [Unknown]
  - Pruritus [Unknown]
  - Rash [Unknown]
